FAERS Safety Report 6898539-2 (Version None)
Quarter: 2010Q3

REPORT INFORMATION
  Report Type: 
  Country: None (occurrence: None)
  Receive Date: 20100802
  Receipt Date: 20071031
  Transmission Date: 20110219
  Serious: No
  Sender: FDA-Public Use
  Company Number: US-PFIZER INC-2007092366

PATIENT
  Sex: Female
  Weight: 52.3 kg

DRUGS (7)
  1. LYRICA [Suspect]
     Indication: FIBROMYALGIA
     Dates: start: 20071022
  2. OXYCONTIN [Suspect]
     Indication: PAIN
  3. TRAZODONE [Concomitant]
     Indication: FIBROMYALGIA
  4. CYCLOBENZAPRINE [Concomitant]
     Indication: FIBROMYALGIA
  5. DRUG, UNSPECIFIED [Concomitant]
  6. BLACK COHOSH [Concomitant]
     Indication: HYPERHIDROSIS
  7. CYMBALTA [Concomitant]

REACTIONS (3)
  - AGITATION [None]
  - FEELING ABNORMAL [None]
  - INSOMNIA [None]
